FAERS Safety Report 14495675 (Version 2)
Quarter: 2018Q2

REPORT INFORMATION
  Report Type: Spontaneous
  Country: US (occurrence: US)
  Receive Date: 20180206
  Receipt Date: 20180410
  Transmission Date: 20180711
  Serious: No
  Sender: FDA-Public Use
  Company Number: US-AMGEN-USASP2018015454

PATIENT
  Age: 25 Year
  Sex: Female

DRUGS (3)
  1. METHOTREXATE. [Suspect]
     Active Substance: METHOTREXATE
     Indication: PRODUCT USED FOR UNKNOWN INDICATION
     Dosage: 15 MG, QWK
     Route: 058
  2. XELJANZ XR [Concomitant]
     Active Substance: TOFACITINIB CITRATE
     Dosage: 11 MG, QD
  3. ENBREL [Suspect]
     Active Substance: ETANERCEPT
     Indication: PRODUCT USED FOR UNKNOWN INDICATION
     Dosage: UNK
     Route: 065

REACTIONS (16)
  - Drug hypersensitivity [Unknown]
  - Spinal disorder [Unknown]
  - Upper respiratory tract infection [Unknown]
  - Drug effect incomplete [Unknown]
  - Alopecia [Unknown]
  - Neck injury [Unknown]
  - Rash [Unknown]
  - Bronchitis [Unknown]
  - Dermatitis allergic [Unknown]
  - Back injury [Unknown]
  - Road traffic accident [Unknown]
  - Sinusitis [Unknown]
  - Condition aggravated [Unknown]
  - Injection site reaction [Unknown]
  - Drug intolerance [Unknown]
  - Nodule [Unknown]

NARRATIVE: CASE EVENT DATE: 20170919
